FAERS Safety Report 5764515-6 (Version None)
Quarter: 2008Q2

REPORT INFORMATION
  Report Type: 
  Country: None (occurrence: None)
  Receive Date: 20080605
  Receipt Date: 20080528
  Transmission Date: 20081010
  Serious: Yes (Other)
  Sender: FDA-Public Use
  Company Number: 2008013886

PATIENT
  Sex: Female

DRUGS (1)
  1. BENADRYL ALLERGY / SINUS (DIPHENHYDRAMINE, PSEUDOEPHEDRINE) [Suspect]
     Indication: DRUG ABUSE
     Dosage: ABOUT 25 TABLETS ONCE, ORAL
     Route: 048
     Dates: start: 20080528, end: 20080528

REACTIONS (3)
  - DRUG ABUSE [None]
  - FEELING ABNORMAL [None]
  - INCORRECT DOSE ADMINISTERED [None]
